FAERS Safety Report 9035539 (Version 1)
Quarter: 2013Q1

REPORT INFORMATION
  Report Type: Report from Study
  Country: DE (occurrence: DE)
  Receive Date: 20130129
  Receipt Date: 20130129
  Transmission Date: 20140127
  Serious: Yes (Congenital Anomaly)
  Sender: FDA-Public Use
  Company Number: GXKR2013DE000649

PATIENT
  Sex: 0

DRUGS (4)
  1. PAROXETINE [Suspect]
     Dosage: MATERNAL DOSE: 40 MG/DAY
     Route: 064
  2. LEPONEX [Suspect]
     Dosage: MATERNAL DOSE: 400 [MG/D ]
     Route: 064
  3. FOLIC ACID [Concomitant]
     Dosage: UNK UKN, UNK
     Route: 064
  4. CYTOTEC [Concomitant]
     Dosage: UNK UKN, UNK
     Route: 064

REACTIONS (4)
  - Renal aplasia [Not Recovered/Not Resolved]
  - Renal hypoplasia [Not Recovered/Not Resolved]
  - Pulmonary hypoplasia [Not Recovered/Not Resolved]
  - Foetal exposure during pregnancy [Unknown]
